FAERS Safety Report 10404012 (Version 1)
Quarter: 2014Q3

REPORT INFORMATION
  Report Type: Spontaneous
  Country: US (occurrence: US)
  Receive Date: 20140822
  Receipt Date: 20140822
  Transmission Date: 20150326
  Serious: No
  Sender: FDA-Public Use
  Company Number: US-NOVEN-14US009941

PATIENT
  Sex: Female

DRUGS (2)
  1. MINIVELLE [Suspect]
     Active Substance: ESTRADIOL
     Indication: HORMONE REPLACEMENT THERAPY
     Dosage: 0.0375 MG/DAY, UNK
     Route: 062
     Dates: start: 2014, end: 2014
  2. MINIVELLE [Suspect]
     Active Substance: ESTRADIOL
     Indication: HOT FLUSH

REACTIONS (3)
  - Application site erythema [Recovered/Resolved]
  - No adverse event [None]
  - Product quality issue [Recovered/Resolved]

NARRATIVE: CASE EVENT DATE: 2014
